FAERS Safety Report 12852801 (Version 1)
Quarter: 2016Q4

REPORT INFORMATION
  Report Type: Spontaneous
  Country: GB (occurrence: GB)
  Receive Date: 20161017
  Receipt Date: 20161017
  Transmission Date: 20170207
  Serious: Yes (Hospitalization)
  Sender: FDA-Public Use
  Company Number: GB-ACCORD-044734

PATIENT
  Age: 25 Year
  Sex: Male

DRUGS (6)
  1. CLOZAPINE. [Suspect]
     Active Substance: CLOZAPINE
     Indication: SCHIZOPHRENIA
  2. AMISULPRIDE [Concomitant]
     Active Substance: AMISULPRIDE
     Dosage: SLOWLY REDUCED AND DISCONTINUED PRIOR TO STARTING CLOZAPINE
  3. DOCOSAHEXANOIC ACID/EICOSAPENTAENOIC ACID [Concomitant]
  4. OLANZAPINE. [Concomitant]
     Active Substance: OLANZAPINE
     Dosage: STARTED WITH 15 MG TWICE DAILY AND THEN REDUCED TO 10 MG ONCE DAILY.
  5. OMEPRAZOLE. [Concomitant]
     Active Substance: OMEPRAZOLE
  6. LANSOPRAZOLE. [Concomitant]
     Active Substance: LANSOPRAZOLE

REACTIONS (1)
  - Systemic inflammatory response syndrome [Recovered/Resolved]
